FAERS Safety Report 9902647 (Version 2)
Quarter: 2014Q1

REPORT INFORMATION
  Report Type: Spontaneous
  Country: US (occurrence: US)
  Receive Date: 20140217
  Receipt Date: 20140307
  Transmission Date: 20141002
  Serious: No
  Sender: FDA-Public Use
  Company Number: US-PFIZER INC-2014041448

PATIENT
  Age: 73 Year
  Sex: Female

DRUGS (1)
  1. LYRICA [Suspect]
     Indication: NEUROPATHY PERIPHERAL
     Dosage: 25 MG, 2X/DAY (TWICE A DAY FOR 15 DAYS)
     Route: 048

REACTIONS (3)
  - Dysstasia [Unknown]
  - Activities of daily living impaired [Unknown]
  - Balance disorder [Unknown]
